FAERS Safety Report 6380293-4 (Version None)
Quarter: 2009Q3

REPORT INFORMATION
  Report Type: 
  Country: None (occurrence: None)
  Receive Date: 20090929
  Receipt Date: 20090917
  Transmission Date: 20100115
  Serious: Yes (Death, Hospitalization)
  Sender: FDA-Public Use
  Company Number: BR-ROCHE-657357

PATIENT
  Age: 23 Year
  Sex: Female

DRUGS (1)
  1. TAMIFLU [Suspect]
     Dosage: STOP DATE REPORTED AS: 2009.
     Route: 065
     Dates: start: 20090831

REACTIONS (2)
  - DEATH [None]
  - UNEVALUABLE EVENT [None]
